FAERS Safety Report 6703531-4 (Version None)
Quarter: 2010Q2

REPORT INFORMATION
  Report Type: 
  Country: None (occurrence: None)
  Receive Date: 20100430
  Receipt Date: 20100420
  Transmission Date: 20101027
  Serious: Yes (Other)
  Sender: FDA-Public Use
  Company Number: PHHY2010DE26084

PATIENT
  Sex: Female
  Weight: 93 kg

DRUGS (2)
  1. ALISKIREN ALI+ [Suspect]
     Dosage: 150 MG, DAILY
     Route: 048
     Dates: start: 20090115
  2. DIOVAN HCT [Suspect]
     Dosage: UNK, (160/12.5 MG)
     Route: 048
     Dates: start: 20081113

REACTIONS (2)
  - CARDIAC FAILURE [None]
  - HYPERTENSION [None]
